FAERS Safety Report 5278691-5 (Version None)
Quarter: 2007Q1

REPORT INFORMATION
  Report Type: 
  Country: None (occurrence: None)
  Receive Date: 20070328
  Receipt Date: 20070319
  Transmission Date: 20070707
  Serious: Yes (Hospitalization)
  Sender: FDA-Public Use
  Company Number: US-AMGEN-US215780

PATIENT
  Sex: Male
  Weight: 64 kg

DRUGS (8)
  1. EPOGEN [Suspect]
     Indication: DIALYSIS
     Route: 058
     Dates: start: 19940413
  2. PAXIL [Concomitant]
  3. LOTENSIN [Concomitant]
  4. NEXIUM [Concomitant]
  5. NORVASC [Concomitant]
  6. RENAGEL [Concomitant]
  7. CLONIDINE [Concomitant]
  8. NEPHRO-VITE [Concomitant]

REACTIONS (1)
  - ANAEMIA [None]
